FAERS Safety Report 8478569-X (Version None)
Quarter: 2012Q2

REPORT INFORMATION
  Report Type: 
  Country: None (occurrence: None)
  Receive Date: 20120629
  Receipt Date: 20120619
  Transmission Date: 20120825
  Serious: Yes (Other)
  Sender: FDA-Public Use
  Company Number: GB-AMGEN-GBRSP2012037882

PATIENT
  Age: 76 Year
  Sex: Male
  Weight: 88 kg

DRUGS (5)
  1. ARANESP [Suspect]
     Dosage: 60 MUG, QWK
     Route: 042
     Dates: start: 20120531, end: 20120614
  2. BINOCRIT [Suspect]
     Dosage: 1000 IU, QWK
     Route: 042
     Dates: start: 20120219, end: 20120410
  3. ARANESP [Suspect]
     Indication: NEPHROGENIC ANAEMIA
     Dosage: 20 MUG, QWK
     Route: 042
     Dates: start: 20120410, end: 20120531
  4. BINOCRIT [Suspect]
     Indication: ANAEMIA
     Dosage: UNK
     Dates: end: 20120410
  5. ARANESP [Suspect]
     Dosage: 80 MUG, QWK
     Route: 042
     Dates: start: 20120619

REACTIONS (1)
  - THERAPEUTIC RESPONSE DECREASED [None]
